FAERS Safety Report 6203300-8 (Version None)
Quarter: 2009Q2

REPORT INFORMATION
  Report Type: 
  Country: None (occurrence: None)
  Receive Date: 20090521
  Receipt Date: 20090507
  Transmission Date: 20091009
  Serious: Yes (Hospitalization)
  Sender: FDA-Public Use
  Company Number: 1000006241

PATIENT
  Age: 59 Year
  Sex: Female

DRUGS (7)
  1. CITALOPRAM HYDROBROMIDE [Suspect]
     Dosage: 20 MG (20 MG, 1 IN 1 D), ORAL
     Route: 048
  2. CITALOPRAM HYDROBROMIDE [Suspect]
     Dosage: 10 MG (10 MG, 1 IN 1 D), ORAL
     Route: 048
  3. ALCOHOL [Suspect]
  4. ADCAL-D3 [Concomitant]
  5. CHLORDIAZEPOXIDE [Concomitant]
  6. RISEDRONATE SODIUM [Concomitant]
  7. TAMOXIFEN CITRATE [Concomitant]

REACTIONS (5)
  - BLOOD POTASSIUM DECREASED [None]
  - FALL [None]
  - GRAND MAL CONVULSION [None]
  - HIP FRACTURE [None]
  - HYPONATRAEMIA [None]
